FAERS Safety Report 16734978 (Version 1)
Quarter: 2019Q3

REPORT INFORMATION
  Report Type: Spontaneous
  Country: US (occurrence: US)
  Receive Date: 20190708
  Receipt Date: 20190708
  Transmission Date: 20191005
  Serious: Yes (Hospitalization)
  Sender: FDA-Public Use
  Company Number: None

PATIENT
  Age: 15 Month
  Sex: Female

DRUGS (7)
  1. CEPHALEXIN SUS [Concomitant]
  2. NEXIUM GRA [Concomitant]
  3. POLY-VI-80-DRO [Concomitant]
  4. FLOVENT HFA AER [Concomitant]
  5. REVATIO [Suspect]
     Active Substance: SILDENAFIL CITRATE
     Indication: PULMONARY HYPERTENSION
     Dosage: ?          OTHER DOSE:0.6 ML; QID PO
     Route: 048
     Dates: start: 20190219
  6. FUROSEMIDE SOL [Concomitant]
  7. VITAMIN D 3 DRO [Concomitant]

REACTIONS (5)
  - Rash generalised [None]
  - Seasonal allergy [None]
  - Diarrhoea [None]
  - Pyrexia [None]
  - Vomiting [None]

NARRATIVE: CASE EVENT DATE: 20190625
